FAERS Safety Report 16018841 (Version 1)
Quarter: 2019Q1

REPORT INFORMATION
  Report Type: Spontaneous
  Country: US (occurrence: US)
  Receive Date: 20190228
  Receipt Date: 20190228
  Transmission Date: 20190418
  Serious: No
  Sender: FDA-Public Use
  Company Number: US-SA-2019SA052031

PATIENT
  Age: 30 Year
  Sex: Female

DRUGS (1)
  1. DUPIXENT [Suspect]
     Active Substance: DUPILUMAB
     Indication: PHARYNGITIS
     Dosage: 300 MG, QOW

REACTIONS (2)
  - Product use in unapproved indication [Unknown]
  - Eye inflammation [Unknown]

NARRATIVE: CASE EVENT DATE: 20190219
